FAERS Safety Report 7502837-9 (Version None)
Quarter: 2011Q2

REPORT INFORMATION
  Report Type: 
  Country: None (occurrence: None)
  Receive Date: 20110518
  Receipt Date: 20110503
  Transmission Date: 20111010
  Serious: Yes (Death, Hospitalization)
  Sender: FDA-Public Use
  Company Number: 2011002119

PATIENT
  Age: 71 Year
  Sex: Female

DRUGS (2)
  1. ERLOTINIB HYDROCHLORIDE [Suspect]
     Indication: LUNG ADENOCARCINOMA
     Dosage: 150 MG, DAILY, ORAL
     Route: 048
     Dates: start: 20110406
  2. BEVACIZUMAB [Suspect]
     Indication: LUNG ADENOCARCINOMA
     Dosage: 15 MG/KG, INTRAVENOUS
     Route: 042
     Dates: start: 20110406

REACTIONS (5)
  - HYPOXIA [None]
  - PNEUMONIA [None]
  - CONFUSIONAL STATE [None]
  - STAPHYLOCOCCUS TEST POSITIVE [None]
  - DEPRESSED LEVEL OF CONSCIOUSNESS [None]
